FAERS Safety Report 6691005-9 (Version None)
Quarter: 2010Q2

REPORT INFORMATION
  Report Type: 
  Country: None (occurrence: None)
  Receive Date: 20100421
  Receipt Date: 20100412
  Transmission Date: 20101027
  Serious: Yes (Hospitalization)
  Sender: FDA-Public Use
  Company Number: GB-MERCK-1002GBR00005

PATIENT
  Age: 64 Year
  Sex: Female
  Weight: 87 kg

DRUGS (3)
  1. COZAAR [Suspect]
     Indication: HYPERTENSION
     Route: 048
  2. METFORMIN [Concomitant]
     Indication: DIABETES MELLITUS
     Route: 065
     Dates: start: 20030820, end: 20030826
  3. INDAPAMIDE [Suspect]
     Route: 065
     Dates: start: 20040904, end: 20040101

REACTIONS (4)
  - BLOOD PRESSURE INCREASED [None]
  - CEREBRAL HAEMORRHAGE [None]
  - CEREBROVASCULAR ACCIDENT [None]
  - VISUAL IMPAIRMENT [None]
